FAERS Safety Report 5718980-0 (Version None)
Quarter: 2008Q2

REPORT INFORMATION
  Report Type: 
  Country: None (occurrence: None)
  Receive Date: 20080425
  Receipt Date: 20080415
  Transmission Date: 20081010
  Serious: Yes (Hospitalization)
  Sender: FDA-Public Use
  Company Number: PL-ABBOTT-08P-129-0447458-00

PATIENT
  Age: 37 Year
  Sex: Female
  Weight: 54 kg

DRUGS (3)
  1. KALETRA [Suspect]
     Indication: HIV INFECTION
     Dosage: DAILY DOSE: 800MG/200MG
     Route: 048
     Dates: start: 20080331, end: 20080407
  2. CARBAMAZEPINE [Concomitant]
     Indication: EPILEPSY
     Route: 048
  3. CLONAZEPAM [Concomitant]
     Indication: EPILEPSY
     Route: 048

REACTIONS (5)
  - HEADACHE [None]
  - NAUSEA [None]
  - NYSTAGMUS [None]
  - VERTIGO [None]
  - VOMITING [None]
